FAERS Safety Report 25213475 (Version 1)
Quarter: 2025Q2

REPORT INFORMATION
  Report Type: Spontaneous
  Country: US (occurrence: None)
  Receive Date: 20250417
  Receipt Date: 20250417
  Transmission Date: 20250716
  Serious: Yes (Other)
  Sender: FDA-CTU
  Company Number: None

PATIENT
  Age: 68 Year
  Sex: Female
  Weight: 95.4 kg

DRUGS (21)
  1. BUPRENORPHINE [Suspect]
     Active Substance: BUPRENORPHINE
     Indication: Pain
     Dosage: OTHER STRENGTH : MCG;?OTHER QUANTITY : 1 PATCH(ES);?OTHER FREQUENCY : EVERY SEVEN DAYS;?
     Route: 061
  2. PROAIR HFA [Concomitant]
     Active Substance: ALBUTEROL SULFATE
  3. TRELEGY ELLIPTA [Concomitant]
     Active Substance: FLUTICASONE FUROATE\UMECLIDINIUM BROMIDE\VILANTEROL TRIFENATATE
  4. ROBAXIN [Concomitant]
     Active Substance: METHOCARBAMOL
  5. NEURONTIN [Concomitant]
     Active Substance: GABAPENTIN
  6. TRAMADOL [Concomitant]
     Active Substance: TRAMADOL
  7. PEPCID [Concomitant]
     Active Substance: FAMOTIDINE
  8. TIROSINT [Concomitant]
     Active Substance: LEVOTHYROXINE SODIUM
  9. B12 [Concomitant]
  10. CAMBIA [Concomitant]
     Active Substance: DICLOFENAC POTASSIUM
  11. UBRELVY [Concomitant]
     Active Substance: UBROGEPANT
  12. BOTOX [Concomitant]
     Active Substance: ONABOTULINUMTOXINA
  13. RHIZOTOMY [Concomitant]
  14. DEXLINSOPRAZOLE [Concomitant]
  15. PILOCARPINE [Concomitant]
     Active Substance: PILOCARPINE
  16. TYLENOL [Concomitant]
     Active Substance: ACETAMINOPHEN
  17. DAILY VITAMIN WITH MINERALS [Concomitant]
  18. VITAMINS NOS [Concomitant]
     Active Substance: VITAMINS
  19. VITAMIN D3 [Concomitant]
     Active Substance: CHOLECALCIFEROL
  20. B12 [Concomitant]
  21. UNSPECIFIED INGREDIENT [Concomitant]
     Active Substance: UNSPECIFIED INGREDIENT

REACTIONS (3)
  - Dyspnoea [None]
  - Pruritus [None]
  - Application site pruritus [None]

NARRATIVE: CASE EVENT DATE: 20250417
